FAERS Safety Report 9468564 (Version 3)
Quarter: 2013Q3

REPORT INFORMATION
  Report Type: Report from Study
  Country: GB (occurrence: GB)
  Receive Date: 20130821
  Receipt Date: 20130916
  Transmission Date: 20140515
  Serious: Yes (Hospitalization)
  Sender: FDA-Public Use
  Company Number: GB-GLAXOSMITHKLINE-B0911830B

PATIENT
  Age: 62 Year
  Sex: Female
  Weight: 62.2 kg

DRUGS (14)
  1. GSK1120212 [Suspect]
     Indication: METASTATIC MALIGNANT MELANOMA
     Dosage: 2MG PER DAY
     Route: 048
     Dates: start: 20130709
  2. PACLITAXEL [Suspect]
     Indication: METASTATIC MALIGNANT MELANOMA
     Dosage: 129MG PER DAY
     Route: 042
     Dates: start: 20130709
  3. THYROXINE [Concomitant]
     Dates: start: 20130815
  4. SIMVASTATIN [Concomitant]
     Dates: start: 20130815
  5. AMITRIPTYLINE [Concomitant]
     Dates: start: 20130815
  6. CETIRIZINE [Concomitant]
     Dates: start: 20130815
  7. OMEPRAZOLE [Concomitant]
     Dates: start: 20130815
  8. DERMOL (UK) [Concomitant]
     Dates: start: 201308
  9. AQUEOUS CREAM [Concomitant]
     Dates: start: 201308
  10. SODIUM BICARBONATE MOUTHWASH [Concomitant]
     Dates: start: 201308
  11. DIFFLAM MOUTHWASH [Concomitant]
     Dates: start: 201308
  12. HYDROCORTISONE CREAM [Concomitant]
     Dates: start: 201308
  13. LOPERAMIDE [Concomitant]
     Dates: start: 20130815
  14. BUSCOPAN [Concomitant]
     Dosage: 20MG AS REQUIRED
     Route: 048
     Dates: start: 20130808

REACTIONS (1)
  - Urinary tract infection [Recovered/Resolved]
